FAERS Safety Report 5828961-4 (Version None)
Quarter: 2008Q3

REPORT INFORMATION
  Report Type: 
  Country: None (occurrence: None)
  Receive Date: 20080731
  Receipt Date: 20080718
  Transmission Date: 20090109
  Serious: Yes (Hospitalization, Other)
  Sender: FDA-Public Use
  Company Number: PHHY2008JP10599

PATIENT
  Age: 8 Year
  Sex: Male

DRUGS (3)
  1. NEORAL [Suspect]
     Indication: BONE MARROW TRANSPLANT
     Dosage: 90 MG/DAY
     Route: 048
     Dates: start: 20050329, end: 20050606
  2. TACROLIMUS [Suspect]
     Indication: CHRONIC GRAFT VERSUS HOST DISEASE
     Dosage: UNK
     Dates: start: 20050601, end: 20050701
  3. PREDNISONE [Concomitant]
     Dosage: 9 MG/DAY

REACTIONS (5)
  - GLOMERULONEPHRITIS MEMBRANOUS [None]
  - HYPERTENSIVE ENCEPHALOPATHY [None]
  - HYPOPROTEINAEMIA [None]
  - NEPHROTIC SYNDROME [None]
  - PROTEINURIA [None]
